FAERS Safety Report 4308795-2 (Version None)
Quarter: 2004Q1

REPORT INFORMATION
  Report Type: 
  Country: None (occurrence: None)
  Receive Date: 20040227
  Receipt Date: 20040223
  Transmission Date: 20041129
  Serious: No
  Sender: FDA-Public Use
  Company Number: 2004UW03249

PATIENT
  Age: 62 Year
  Sex: Male

DRUGS (1)
  1. IRESSA [Suspect]
     Dosage: 250 MG QD PO
     Route: 048
     Dates: start: 20031101

REACTIONS (2)
  - HEADACHE [None]
  - SUBDURAL HAEMORRHAGE [None]
